FAERS Safety Report 5266683-1 (Version None)
Quarter: 2007Q1

REPORT INFORMATION
  Report Type: 
  Country: None (occurrence: None)
  Receive Date: 20070312
  Receipt Date: 20070226
  Transmission Date: 20070707
  Serious: Yes (Hospitalization)
  Sender: FDA-Public Use
  Company Number: B0460949A

PATIENT
  Age: 12 Year
  Sex: Male

DRUGS (3)
  1. LAMICTAL [Suspect]
  2. LORAZEPAM [Concomitant]
  3. PHENYTOIN [Concomitant]

REACTIONS (8)
  - ACCIDENTAL DRUG INTAKE BY CHILD [None]
  - ANTICONVULSANT DRUG LEVEL ABOVE THERAPEUTIC [None]
  - APHAGIA [None]
  - DISTURBANCE IN SOCIAL BEHAVIOUR [None]
  - DRUG LEVEL INCREASED [None]
  - GRAND MAL CONVULSION [None]
  - HAEMATEMESIS [None]
  - LEGAL PROBLEM [None]
